FAERS Safety Report 5983681-0 (Version None)
Quarter: 2008Q4

REPORT INFORMATION
  Report Type: 
  Country: None (occurrence: None)
  Receive Date: 20081205
  Receipt Date: 20081205
  Transmission Date: 20090506
  Serious: Yes (Hospitalization)
  Sender: FDA-Public Use
  Company Number: None

PATIENT
  Age: 70 Year
  Sex: Male
  Weight: 56.73 kg

DRUGS (1)
  1. DIAZEPAM [Suspect]
     Dosage: 10 MG OTHER IV
     Route: 042
     Dates: start: 20080408, end: 20080408

REACTIONS (4)
  - BRADYCARDIA [None]
  - HYPOTENSION [None]
  - LETHARGY [None]
  - RESPIRATORY ARREST [None]
